FAERS Safety Report 9717517 (Version 2)
Quarter: 2015Q3

REPORT INFORMATION
  Report Type: Spontaneous
  Country: US (occurrence: US)
  Receive Date: 20131127
  Receipt Date: 20150803
  Transmission Date: 20151125
  Serious: No
  Sender: FDA-Public Use
  Company Number: US-GILEAD-2009-0020506

PATIENT
  Age: 71 Year
  Sex: Male
  Weight: 60.33 kg

DRUGS (16)
  1. KETAMINE [Concomitant]
     Active Substance: KETAMINE
  2. SODIUM CHLORIDE. [Concomitant]
     Active Substance: SODIUM CHLORIDE
  3. PROTONIX [Concomitant]
     Active Substance: PANTOPRAZOLE SODIUM
  4. OXYGEN. [Concomitant]
     Active Substance: OXYGEN
  5. LETAIRIS [Suspect]
     Active Substance: AMBRISENTAN
     Indication: PULMONARY ARTERIAL HYPERTENSION
     Route: 048
     Dates: start: 20070913
  6. GABAPENTIN. [Concomitant]
     Active Substance: GABAPENTIN
  7. POLOXAMER [Concomitant]
     Active Substance: POLOXAMER
  8. NIFEDICAL XL [Concomitant]
     Active Substance: NIFEDIPINE
  9. REMODULIN [Concomitant]
     Active Substance: TREPROSTINIL
  10. REVATIO [Concomitant]
     Active Substance: SILDENAFIL CITRATE
  11. KETOPROFEN. [Concomitant]
     Active Substance: KETOPROFEN
  12. LECITHIN [Concomitant]
     Active Substance: LECITHIN
  13. LIDOCAINE. [Concomitant]
     Active Substance: LIDOCAINE
  14. AZATHIOPRINE. [Concomitant]
     Active Substance: AZATHIOPRINE
  15. LEVOTHYROXINE. [Concomitant]
     Active Substance: LEVOTHYROXINE
  16. CALCIUM +D [Concomitant]
     Active Substance: CALCIUM\VITAMIN D

REACTIONS (1)
  - Haemoglobin decreased [Unknown]
